FAERS Safety Report 14017912 (Version 1)
Quarter: 2017Q3

REPORT INFORMATION
  Report Type: Spontaneous
  Country: US (occurrence: US)
  Receive Date: 20170928
  Receipt Date: 20170928
  Transmission Date: 20171128
  Serious: Yes (Other)
  Sender: FDA-Public Use
  Company Number: US-AUROBINDO-AUR-APU-2017-40571

PATIENT
  Age: 56 Year
  Sex: Female

DRUGS (1)
  1. VALSARTAN 320MG [Suspect]
     Active Substance: VALSARTAN
     Indication: BLOOD PRESSURE MEASUREMENT
     Dosage: 320 MG, ONCE A DAY
     Route: 065
     Dates: start: 20170821

REACTIONS (4)
  - Drug ineffective [Unknown]
  - Syncope [Unknown]
  - Product substitution issue [Unknown]
  - Headache [Unknown]

NARRATIVE: CASE EVENT DATE: 20170822
